FAERS Safety Report 9181724 (Version 3)
Quarter: 2013Q3

REPORT INFORMATION
  Report Type: Spontaneous
  Country: US (occurrence: US)
  Receive Date: 20130322
  Receipt Date: 20130828
  Transmission Date: 20140515
  Serious: Yes (Hospitalization, Other)
  Sender: FDA-Public Use
  Company Number: US-UCBSA-079979

PATIENT
  Age: 51 Year
  Sex: Male

DRUGS (4)
  1. VIMPAT [Suspect]
     Indication: CONVULSION
     Dosage: STRENGTH: 100 MG
     Dates: start: 201206, end: 201301
  2. VIMPAT [Suspect]
     Indication: CONVULSION
     Dosage: 100 MG 4/DAILY
     Dates: start: 201301
  3. NEURONTIN [Concomitant]
  4. ATIVAN [Concomitant]

REACTIONS (5)
  - Status epilepticus [Not Recovered/Not Resolved]
  - Convulsion [Recovered/Resolved]
  - Inappropriate schedule of drug administration [Recovered/Resolved]
  - Malaise [Not Recovered/Not Resolved]
  - Gout [Not Recovered/Not Resolved]
